FAERS Safety Report 4774876-2 (Version None)
Quarter: 2005Q3

REPORT INFORMATION
  Report Type: 
  Country: None (occurrence: None)
  Receive Date: 20050919
  Receipt Date: 20050909
  Transmission Date: 20060218
  Serious: Yes (Death)
  Sender: FDA-Public Use
  Company Number: 2005126004

PATIENT
  Age: 61 Year
  Sex: Male

DRUGS (1)
  1. NEURONTIN [Suspect]
     Indication: RESTLESS LEGS SYNDROME

REACTIONS (2)
  - COMPLETED SUICIDE [None]
  - DRUG INEFFECTIVE [None]
